FAERS Safety Report 8300226 (Version 4)
Quarter: 2014Q2

REPORT INFORMATION
  Report Type: Spontaneous
  Country: US (occurrence: US)
  Receive Date: 20111219
  Receipt Date: 20140507
  Transmission Date: 20141212
  Serious: Yes (Hospitalization)
  Sender: FDA-Public Use
  Company Number: US-ASTRAZENECA-2011SE40936

PATIENT
  Age: 79 Year
  Sex: Female

DRUGS (5)
  1. CRESTOR [Suspect]
     Indication: BLOOD CHOLESTEROL ABNORMAL
     Route: 048
  2. CRESTOR [Suspect]
     Indication: BLOOD CHOLESTEROL ABNORMAL
     Route: 048
  3. CRESTOR [Suspect]
     Indication: BLOOD CHOLESTEROL ABNORMAL
     Route: 048
  4. ALLERGY MEDICINE [Concomitant]
     Indication: HYPERSENSITIVITY
  5. BP MEDICATION [Concomitant]
     Indication: BLOOD PRESSURE ABNORMAL

REACTIONS (8)
  - Malaise [Unknown]
  - Food poisoning [Unknown]
  - Bone pain [Unknown]
  - Gait disturbance [Unknown]
  - Throat irritation [Unknown]
  - Muscle spasms [Unknown]
  - Abdominal discomfort [Unknown]
  - Intentional product misuse [Unknown]
